FAERS Safety Report 4446130-X (Version None)
Quarter: 2004Q3

REPORT INFORMATION
  Report Type: 
  Country: None (occurrence: None)
  Receive Date: 20040907
  Receipt Date: 20040830
  Transmission Date: 20050211
  Serious: Yes (Hospitalization, Other)
  Sender: FDA-Public Use
  Company Number: 2004UW18298

PATIENT
  Age: 4 Month
  Sex: Female
  Weight: 5.4432 kg

DRUGS (5)
  1. PULMICORT RESPULES [Suspect]
     Indication: RESPIRATORY DISTRESS
     Dosage: 0.25 MG/ML IH
     Route: 055
  2. PULMICORT RESPULES [Suspect]
     Indication: RESPIRATORY DISTRESS
     Dosage: 0.5 MG/ML BID IH
  3. XOPENEX [Concomitant]
  4. REGLAN [Concomitant]
  5. PREVACID [Concomitant]

REACTIONS (3)
  - GASTROOESOPHAGEAL REFLUX DISEASE [None]
  - MEDICATION ERROR [None]
  - SKIN DISCOLOURATION [None]
